FAERS Safety Report 7365955-4 (Version None)
Quarter: 2011Q1

REPORT INFORMATION
  Report Type: 
  Country: None (occurrence: None)
  Receive Date: 20110322
  Receipt Date: 20110314
  Transmission Date: 20110831
  Serious: Yes (Hospitalization)
  Sender: FDA-Public Use
  Company Number: US-US-EMD SERONO, INC.-235613J09USA

PATIENT
  Sex: Female
  Weight: 79 kg

DRUGS (3)
  1. CYANOCOBALAMIN [Concomitant]
     Route: 058
  2. REBIF [Suspect]
     Indication: MULTIPLE SCLEROSIS
     Route: 058
     Dates: start: 20090201, end: 20100501
  3. VITAMIN D [Concomitant]

REACTIONS (4)
  - INFLUENZA LIKE ILLNESS [None]
  - CYST [None]
  - MULTIPLE SCLEROSIS [None]
  - ENDOMETRIOSIS [None]
